FAERS Safety Report 9351507 (Version 7)
Quarter: 2015Q1

REPORT INFORMATION
  Report Type: Report from Study
  Country: ES (occurrence: ES)
  Receive Date: 20130617
  Receipt Date: 20150121
  Transmission Date: 20150721
  Serious: Yes (Death, Hospitalization, Disabling, Other)
  Sender: FDA-Public Use
  Company Number: ES-ACTELION-A-CH2013-84399

PATIENT
  Age: 8 Year
  Sex: Female
  Weight: 8.2 kg

DRUGS (2)
  1. ZAVESCA [Suspect]
     Active Substance: MIGLUSTAT
     Indication: NIEMANN-PICK DISEASE
     Dosage: 100 MG, BID
     Route: 048
     Dates: start: 20090902, end: 20140908
  2. CLOMETHIAZOLE [Concomitant]
     Active Substance: CLOMETHIAZOLE
     Dosage: UNK
     Dates: start: 20101202

REACTIONS (16)
  - Diarrhoea [Not Recovered/Not Resolved]
  - Condition aggravated [Fatal]
  - Pneumonia [Fatal]
  - Thrombocytopenia [Recovered/Resolved]
  - Respiratory failure [Fatal]
  - Weight decreased [Fatal]
  - Niemann-Pick disease [Fatal]
  - Enteral nutrition [Fatal]
  - Dysphagia [Fatal]
  - Gaze palsy [Fatal]
  - Seizure [Not Recovered/Not Resolved]
  - Growth retardation [Not Recovered/Not Resolved]
  - Tremor [Not Recovered/Not Resolved]
  - Platelet count decreased [Recovered/Resolved]
  - Disease progression [Fatal]
  - Ataxia [Fatal]

NARRATIVE: CASE EVENT DATE: 200909
